FAERS Safety Report 9461973 (Version 1)
Quarter: 2013Q3

REPORT INFORMATION
  Report Type: Spontaneous
  Country: US (occurrence: US)
  Receive Date: 20130816
  Receipt Date: 20130816
  Transmission Date: 20140515
  Serious: Yes (Hospitalization)
  Sender: FDA-Public Use
  Company Number: US-PFIZER INC-2013235379

PATIENT
  Age: 68 Year
  Sex: Female

DRUGS (3)
  1. NADOLOL [Suspect]
     Dosage: UNK
  2. LISINOPRIL [Interacting]
     Dosage: UNK
  3. PREDNISONE [Interacting]
     Dosage: UNK

REACTIONS (5)
  - Drug interaction [Unknown]
  - Blood pressure decreased [Unknown]
  - Loss of consciousness [Unknown]
  - Cerebral haemorrhage [Unknown]
  - Brain injury [Recovered/Resolved]
